FAERS Safety Report 7933737-8 (Version None)
Quarter: 2011Q4

REPORT INFORMATION
  Report Type: 
  Country: None (occurrence: None)
  Receive Date: 20111122
  Receipt Date: 20111114
  Transmission Date: 20120403
  Serious: Yes (Hospitalization)
  Sender: FDA-Public Use
  Company Number: GB-PFIZER INC-2011090663

PATIENT
  Age: 76 Year
  Sex: Female
  Weight: 77.4 kg

DRUGS (1)
  1. SUNITINIB MALATE [Suspect]
     Indication: GASTROINTESTINAL STROMAL TUMOUR
     Dosage: 37.5 MG, 1X/DAY, 28 DAYS ON 14 DAYS OFF
     Route: 048
     Dates: start: 20050704, end: 20110421

REACTIONS (1)
  - PERIDIVERTICULAR ABSCESS [None]
